FAERS Safety Report 8616232-2 (Version None)
Quarter: 2012Q3

REPORT INFORMATION
  Report Type: 
  Country: None (occurrence: None)
  Receive Date: 20120823
  Receipt Date: 20120813
  Transmission Date: 20120928
  Serious: Yes (Hospitalization)
  Sender: FDA-Public Use
  Company Number: DE-ROCHE-1100914

PATIENT
  Sex: Female
  Weight: 75 kg

DRUGS (6)
  1. PLACEBO [Suspect]
     Indication: BREAST CANCER
     Dates: start: 20120425
  2. DOCETAXEL [Suspect]
     Indication: BREAST CANCER
     Route: 042
     Dates: start: 20120425
  3. HERCEPTIN [Suspect]
     Indication: BREAST CANCER
     Route: 042
     Dates: start: 20120425
  4. HERCEPTIN [Suspect]
     Route: 042
  5. METOPROLOL TARTRATE [Concomitant]
  6. CARBOPLATIN [Suspect]
     Indication: BREAST CANCER
     Dosage: 5 AUC
     Route: 042
     Dates: start: 20120425

REACTIONS (1)
  - THROMBOCYTOPENIA [None]
